FAERS Safety Report 9200938 (Version 2)
Quarter: 2013Q2

REPORT INFORMATION
  Report Type: Report from Study
  Country: CA (occurrence: CA)
  Receive Date: 20130401
  Receipt Date: 20130530
  Transmission Date: 20140414
  Serious: Yes (Other)
  Sender: FDA-Public Use
  Company Number: CA-JNJFOC-20130313718

PATIENT
  Age: 57 Year
  Sex: Female
  Weight: 62.14 kg

DRUGS (1)
  1. REMICADE [Suspect]
     Indication: RHEUMATOID ARTHRITIS
     Route: 042
     Dates: start: 2002

REACTIONS (11)
  - Epicondylitis [Unknown]
  - Hypertension [Unknown]
  - Thyroid disorder [Unknown]
  - Rheumatoid arthritis [Unknown]
  - Contusion [Recovered/Resolved]
  - Bronchitis [Unknown]
  - Fall [Unknown]
  - Pruritus [Unknown]
  - Back injury [Unknown]
  - Endodontic procedure [Unknown]
  - Tendonitis [Unknown]
